FAERS Safety Report 14128519 (Version 1)
Quarter: 2017Q4

REPORT INFORMATION
  Report Type: Spontaneous
  Country: US (occurrence: US)
  Receive Date: 20171026
  Receipt Date: 20171026
  Transmission Date: 20180321
  Serious: No
  Sender: FDA-Public Use
  Company Number: None

PATIENT
  Age: 58 Year
  Sex: Female
  Weight: 60.75 kg

DRUGS (3)
  1. HAIR SKIN AND NAILS GUMMIES [Concomitant]
  2. DEXTROAMPHET SACCHARAT, AMPHET ASPARTATE, DEXTROAMPHET SULFATE AND AMPHET SULFAT [Suspect]
     Active Substance: AMPHETAMINE ASPARTATE\AMPHETAMINE SULFATE\DEXTROAMPHETAMINE SACCHARATE\DEXTROAMPHETAMINE SULFATE
     Indication: ATTENTION DEFICIT/HYPERACTIVITY DISORDER
     Dosage: ?          QUANTITY:30 TABLET(S);?
     Route: 048
     Dates: start: 20170907, end: 20171019
  3. MEGARED OMEGA-KRILL [Concomitant]

REACTIONS (13)
  - Secondary tic [None]
  - Drug ineffective [None]
  - Product substitution issue [None]
  - Extrasystoles [None]
  - Rash [None]
  - Balance disorder [None]
  - Tunnel vision [None]
  - Frustration tolerance decreased [None]
  - Vision blurred [None]
  - Memory impairment [None]
  - Depression [None]
  - Anger [None]
  - Palpitations [None]

NARRATIVE: CASE EVENT DATE: 20170907
